FAERS Safety Report 10458837 (Version 1)
Quarter: 2014Q3

REPORT INFORMATION
  Report Type: Spontaneous
  Country: IT (occurrence: IT)
  Receive Date: 20140917
  Receipt Date: 20140917
  Transmission Date: 20150326
  Serious: Yes (Death, Other)
  Sender: FDA-Public Use
  Company Number: IT-MYLAN-2014M1004544

PATIENT

DRUGS (2)
  1. SUNITINIB [Suspect]
     Active Substance: SUNITINIB
     Indication: THYROID CANCER METASTATIC
     Dosage: 50MG DAILY; 4W ON, 2W OFF
     Route: 065
     Dates: start: 200908
  2. SUNITINIB [Suspect]
     Active Substance: SUNITINIB
     Dosage: 37.5MG DAILY; 4W ON, 2W OFF
     Route: 065

REACTIONS (3)
  - Dry eye [Unknown]
  - Stomatitis [Unknown]
  - Decreased appetite [Recovered/Resolved]
